FAERS Safety Report 6551092-5 (Version None)
Quarter: 2010Q1

REPORT INFORMATION
  Report Type: 
  Country: None (occurrence: None)
  Receive Date: 20100121
  Receipt Date: 20100114
  Transmission Date: 20100710
  Serious: Yes (Death, Hospitalization)
  Sender: FDA-Public Use
  Company Number: TRP_06737_2010

PATIENT
  Sex: Male

DRUGS (5)
  1. RIBAPAK (NOT SPECIFIED) [Suspect]
     Indication: HEPATITIS C
     Dosage: (600 MG BID)
     Dates: start: 20090717, end: 20091107
  2. PEGASYS [Suspect]
     Indication: HEPATITIS C
     Dates: start: 20090717, end: 20091107
  3. INSULIN [Concomitant]
  4. COZAAR [Concomitant]
  5. FINASTERIDE [Concomitant]

REACTIONS (15)
  - ACUTE RESPIRATORY FAILURE [None]
  - ASCITES [None]
  - DECREASED APPETITE [None]
  - DIARRHOEA [None]
  - FATIGUE [None]
  - HEPATIC CIRRHOSIS [None]
  - INCOHERENT [None]
  - MOOD ALTERED [None]
  - PALLOR [None]
  - PANCYTOPENIA [None]
  - PERSONALITY CHANGE [None]
  - RHABDOMYOLYSIS [None]
  - SEPTIC SHOCK [None]
  - SLUGGISHNESS [None]
  - WEIGHT INCREASED [None]
